FAERS Safety Report 17710832 (Version 2)
Quarter: 2020Q2

REPORT INFORMATION
  Report Type: Spontaneous
  Country: US (occurrence: US)
  Receive Date: 20200427
  Receipt Date: 20200504
  Transmission Date: 20200714
  Serious: Yes (Other)
  Sender: FDA-Public Use
  Company Number: US-PFIZER INC-2020159876

PATIENT
  Sex: Female

DRUGS (1)
  1. RELPAX [Suspect]
     Active Substance: ELETRIPTAN HYDROBROMIDE
     Dosage: 40 MG

REACTIONS (16)
  - Concussion [Unknown]
  - Pain [Unknown]
  - Tachycardia [Unknown]
  - Vertigo [Unknown]
  - Circadian rhythm sleep disorder [Unknown]
  - Incoherent [Unknown]
  - Hypertension [Not Recovered/Not Resolved]
  - Otitis media acute [Unknown]
  - Transient ischaemic attack [Unknown]
  - Tooth infection [Unknown]
  - Fall [Unknown]
  - Memory impairment [Unknown]
  - Bedridden [Unknown]
  - Vision blurred [Unknown]
  - Craniocerebral injury [Unknown]
  - Migraine with aura [Unknown]

NARRATIVE: CASE EVENT DATE: 202002
